FAERS Safety Report 5256457-X (Version None)
Quarter: 2007Q1

REPORT INFORMATION
  Report Type: 
  Country: None (occurrence: None)
  Receive Date: 20070306
  Receipt Date: 20070301
  Transmission Date: 20070707
  Serious: Yes (Other)
  Sender: FDA-Public Use
  Company Number: US-GLAXOSMITHKLINE-A0627982A

PATIENT
  Age: 66 Year
  Sex: Male

DRUGS (8)
  1. COREG [Suspect]
     Indication: DRUG USE FOR UNKNOWN INDICATION
     Dosage: 3.125MG UNKNOWN
     Route: 065
  2. KLOR-CON [Concomitant]
     Dosage: 20MG PER DAY
     Route: 048
  3. LASIX [Concomitant]
     Dosage: 40MG PER DAY
  4. PAXIL [Concomitant]
     Dosage: 10MG PER DAY
  5. MAGNESIUM OXIDE [Concomitant]
  6. NIFEDIPINE [Concomitant]
     Dosage: 60MG PER DAY
  7. FOLIC ACID [Concomitant]
     Dosage: 1G PER DAY
  8. ASPIRIN [Concomitant]
     Dosage: 81MG PER DAY
     Route: 048

REACTIONS (1)
  - BRADYCARDIA [None]
